FAERS Safety Report 19139685 (Version 1)
Quarter: 2021Q2

REPORT INFORMATION
  Report Type: Spontaneous
  Country: US (occurrence: US)
  Receive Date: 20210415
  Receipt Date: 20210415
  Transmission Date: 20210717
  Serious: No
  Sender: FDA-Public Use
  Company Number: None

PATIENT
  Sex: Female

DRUGS (1)
  1. IMATINIB MESYLATE 400MG TEVA PHARMACEUTICALS USA [Suspect]
     Active Substance: IMATINIB MESYLATE
     Route: 048
     Dates: start: 20201001

REACTIONS (7)
  - Headache [None]
  - Wrong schedule [None]
  - Therapy change [None]
  - Vomiting [None]
  - Chest pain [None]
  - Nausea [None]
  - Decreased appetite [None]
